FAERS Safety Report 18757484 (Version 1)
Quarter: 2021Q1

REPORT INFORMATION
  Report Type: Spontaneous
  Country: US (occurrence: US)
  Receive Date: 20210119
  Receipt Date: 20210119
  Transmission Date: 20210419
  Serious: Yes (Hospitalization, Other)
  Sender: FDA-Public Use
  Company Number: US-PFIZER INC-2021026556

PATIENT
  Age: 89 Year
  Sex: Female
  Weight: 72.57 kg

DRUGS (2)
  1. LYRICA [Suspect]
     Active Substance: PREGABALIN
     Indication: FIBROMYALGIA
  2. LYRICA [Suspect]
     Active Substance: PREGABALIN
     Indication: ARTHRITIS
     Dosage: 150 MG, 2X/DAY
     Route: 048

REACTIONS (7)
  - Urinary tract infection [Unknown]
  - SARS-CoV-2 test positive [Unknown]
  - Loss of personal independence in daily activities [Unknown]
  - Illness [Unknown]
  - Asthenia [Unknown]
  - Delirium [Unknown]
  - Fall [Unknown]
